FAERS Safety Report 15323583 (Version 1)
Quarter: 2018Q3

REPORT INFORMATION
  Report Type: Report from Study
  Country: None (occurrence: US)
  Receive Date: 20180827
  Receipt Date: 20180827
  Transmission Date: 20181010
  Serious: Yes (Other)
  Sender: FDA-Public Use
  Company Number: US-ABBVIE-18K-163-2460666-00

PATIENT
  Age: 46 Year
  Sex: Male

DRUGS (1)
  1. HUMIRA [Suspect]
     Active Substance: ADALIMUMAB
     Indication: RHEUMATOID ARTHRITIS
     Route: 058
     Dates: start: 20180619, end: 20180821

REACTIONS (4)
  - Transient ischaemic attack [Unknown]
  - Aphasia [Unknown]
  - Loss of consciousness [Unknown]
  - Hypertensive emergency [Recovered/Resolved]

NARRATIVE: CASE EVENT DATE: 201808
